FAERS Safety Report 25341043 (Version 3)
Quarter: 2025Q3

REPORT INFORMATION
  Report Type: Report from Study
  Country: US (occurrence: US)
  Receive Date: 20250521
  Receipt Date: 20250702
  Transmission Date: 20251020
  Serious: Yes (Hospitalization, Other)
  Sender: ACADIA PHARMACEUTICALS
  Company Number: US-ACADIA PHARMACEUTICALS INC.-ACA-2025-PIM-005946

PATIENT
  Sex: Male

DRUGS (15)
  1. NUPLAZID [Suspect]
     Active Substance: PIMAVANSERIN TARTRATE
     Indication: Parkinson^s disease
     Dosage: 34 MILLIGRAM, QD
     Route: 048
  2. NUPLAZID [Suspect]
     Active Substance: PIMAVANSERIN TARTRATE
     Indication: Hallucination
  3. NUPLAZID [Suspect]
     Active Substance: PIMAVANSERIN TARTRATE
     Indication: Delusion
  4. NUPLAZID [Suspect]
     Active Substance: PIMAVANSERIN TARTRATE
     Indication: Product used for unknown indication
     Route: 065
  5. ACETAMINOPHEN [Concomitant]
     Active Substance: ACETAMINOPHEN
  6. AMLODIPINE BESYLATE [Concomitant]
     Active Substance: AMLODIPINE BESYLATE
  7. ASPIRIN [Concomitant]
     Active Substance: ASPIRIN
  8. ATORVASTATIN [Concomitant]
     Active Substance: ATORVASTATIN
  9. CARBIDOPA\LEVODOPA [Concomitant]
     Active Substance: CARBIDOPA\LEVODOPA
  10. COLACE [Concomitant]
     Active Substance: DOCUSATE SODIUM
  11. LEVOTHYROXINE [Concomitant]
     Active Substance: LEVOTHYROXINE
  12. MELATONIN [Concomitant]
     Active Substance: MELATONIN
  13. NITROGLYCERIN [Concomitant]
     Active Substance: NITROGLYCERIN
     Route: 060
  14. TAMSULOSIN HYDROCHLORIDE [Concomitant]
     Active Substance: TAMSULOSIN HYDROCHLORIDE
  15. VITAMIN B12 [Concomitant]
     Active Substance: CYANOCOBALAMIN

REACTIONS (12)
  - Hip fracture [Not Recovered/Not Resolved]
  - Hip surgery [Not Recovered/Not Resolved]
  - Cognitive disorder [Not Recovered/Not Resolved]
  - Sleep disorder [Unknown]
  - Hallucination, visual [Not Recovered/Not Resolved]
  - Fall [Not Recovered/Not Resolved]
  - Adverse drug reaction [Not Recovered/Not Resolved]
  - Balance disorder [Not Recovered/Not Resolved]
  - Joint swelling [Not Recovered/Not Resolved]
  - Anxiety [Not Recovered/Not Resolved]
  - Cyst [Not Recovered/Not Resolved]
  - Confusional state [Not Recovered/Not Resolved]
